FAERS Safety Report 24368031 (Version 1)
Quarter: 2024Q3

REPORT INFORMATION
  Report Type: Spontaneous
  Country: CN (occurrence: CN)
  Receive Date: 20240926
  Receipt Date: 20240926
  Transmission Date: 20241017
  Serious: Yes (Other)
  Sender: EMD SERONO INC
  Company Number: CN-Merck Healthcare KGaA-2024050456

PATIENT
  Age: 37 Year
  Sex: Female
  Weight: 54 kg

DRUGS (1)
  1. GLUCOPHAGE [Suspect]
     Active Substance: METFORMIN HYDROCHLORIDE
     Indication: Insulin resistance
     Route: 048
     Dates: start: 20240905, end: 20240913

REACTIONS (1)
  - Constipation [Recovering/Resolving]

NARRATIVE: CASE EVENT DATE: 20240910
